FAERS Safety Report 5805392-4 (Version None)
Quarter: 2008Q3

REPORT INFORMATION
  Report Type: 
  Country: None (occurrence: None)
  Receive Date: 20080709
  Receipt Date: 20080709
  Transmission Date: 20090109
  Serious: Yes (Other)
  Sender: FDA-Public Use
  Company Number: None

PATIENT
  Age: 23 Year
  Sex: Female
  Weight: 53.0709 kg

DRUGS (8)
  1. VANCOMYCIN HCL [Suspect]
     Indication: OVARIAN CYST RUPTURED
     Dosage: 1000MG IV Q 12 HOURS
     Route: 042
     Dates: start: 20080707
  2. VANCOMYCIN HCL [Suspect]
     Indication: PELVIC INFLAMMATORY DISEASE
     Dosage: 1000MG IV Q 12 HOURS
     Route: 042
     Dates: start: 20080707
  3. GENTAMICIN [Concomitant]
  4. FLAGYL [Concomitant]
  5. ZOSYN [Concomitant]
  6. ZOFRAN [Concomitant]
  7. ROCEPHIN [Concomitant]
  8. ZITHROMAX [Concomitant]

REACTIONS (1)
  - PRURITUS [None]
